FAERS Safety Report 7150846-4 (Version None)
Quarter: 2010Q4

REPORT INFORMATION
  Report Type: 
  Country: None (occurrence: None)
  Receive Date: 20101210
  Receipt Date: 20101202
  Transmission Date: 20110411
  Serious: Yes (Hospitalization, Other)
  Sender: FDA-Public Use
  Company Number: US-PFIZER INC-2010122908

PATIENT
  Sex: Male
  Weight: 129 kg

DRUGS (27)
  1. DEPO-TESTOSTERONE [Suspect]
     Indication: HYPOGONADISM
     Dosage: 200 MG, EVERY TEN DAYS
     Route: 030
     Dates: start: 20100907, end: 20101028
  2. DEPO-TESTOSTERONE [Suspect]
     Indication: HEART RATE IRREGULAR
  3. CALCIUM WITH VITAMIN D [Concomitant]
     Indication: MIGRAINE
     Dosage: 2 DF, 2X/DAY, 250/125
     Route: 048
  4. CLONIDINE HYDROCHLORIDE [Concomitant]
     Indication: HYPERTENSION
     Dosage: 0.1 MG, 2X/DAY
     Route: 048
  5. EPIPEN [Concomitant]
     Indication: HYPERSENSITIVITY
     Dosage: 0.3MG/0.3ML
     Route: 030
  6. ERGOCALCIFEROL [Concomitant]
     Indication: VITAMIN SUPPLEMENTATION
     Dosage: 1 DF, 2X/WEEK
     Route: 048
  7. FUROSEMIDE [Concomitant]
     Indication: DIURETIC THERAPY
     Dosage: 40 MG, ONE 1/2 TABLET, EVERY DAY
     Route: 048
  8. MAGNESIUM OXIDE [Concomitant]
     Indication: MIGRAINE
     Dosage: 420 MG, ONE 1/2 TABLET, EVERY NIGHT
     Route: 048
  9. POTASSIUM CHLORIDE [Concomitant]
     Dosage: 10 MEQ, 4 TABLETS EVERY MORNING
  10. RANITIDINE HYDROCHLORIDE [Concomitant]
     Indication: ABDOMINAL PAIN UPPER
     Dosage: 150 MG, 2X/DAY
     Route: 048
  11. PANTOPRAZOLE [Concomitant]
     Dosage: 40 MG, 2X/DAY
     Route: 048
  12. CLONAZEPAM [Concomitant]
     Dosage: 0.5 MG, UNK
     Route: 048
  13. PREGABALIN [Concomitant]
     Dosage: 100 MG, UNK
     Route: 048
  14. ZOLMITRIPTAN [Concomitant]
     Dosage: 2.5 MG, UNK
     Route: 048
  15. SYNTHROID [Concomitant]
     Indication: HYPOTHYROIDISM
     Dosage: 0.15 MG, 1X/DAY
     Route: 048
  16. ROSUVASTATIN CALCIUM AND ROSUVASTATIN SODIUM [Concomitant]
     Dosage: 40 MG, ONE 1/2 TABLET, EVERY DAY
     Route: 048
  17. CAPTOPRIL [Concomitant]
     Indication: HYPERTENSION
     Dosage: 50 MG, 1X/DAY
     Route: 048
  18. CYCLOBENZAPRINE HYDROCHLORIDE [Concomitant]
     Indication: MUSCLE SPASMS
     Dosage: 10 MG, AS NEEDED
     Route: 048
  19. DOCUSATE SODIUM [Concomitant]
     Dosage: 100 MG, 2X/DAY
     Route: 048
  20. METFORMIN HYDROCHLORIDE [Concomitant]
     Indication: DIABETES MELLITUS
     Dosage: 500 MG, 2X/DAY
     Route: 048
  21. VERAPAMIL HYDROCHLORIDE [Concomitant]
     Indication: MIGRAINE
     Dosage: 240 MG, 1X/DAY
     Route: 048
  22. CETIRIZINE HCL AND PSEUDOEPHEDRINE [Concomitant]
     Dosage: 10 MG, AS NEEDED
     Route: 048
  23. FLUTICASONE PROPIONATE [Concomitant]
     Dosage: 50 UG, TWO SPRAYS, EVERY DAY
     Route: 045
  24. SITAGLIPTIN PHOSPHATE [Concomitant]
     Dosage: 50 MG, 2X/DAY
  25. OLOPATADINE HYDROCHLORIDE [Concomitant]
     Dosage: 1 DROP, EACH EYE, EVERY DAY
  26. EXENATIDE [Concomitant]
     Dosage: 10 IU, 2X/DAY
     Route: 058
  27. DIPHENHYDRAMINE HYDROCHLORIDE [Concomitant]
     Dosage: 50 MG, AS NEEDED
     Route: 048

REACTIONS (1)
  - INJECTION SITE ABSCESS [None]
